FAERS Safety Report 18528826 (Version 1)
Quarter: 2020Q4

REPORT INFORMATION
  Report Type: Spontaneous
  Country: US (occurrence: US)
  Receive Date: 20201120
  Receipt Date: 20201120
  Transmission Date: 20210114
  Serious: Yes (Death)
  Sender: FDA-Public Use
  Company Number: US-SHIONOGI, INC-2020000555

PATIENT
  Age: 25 Year
  Sex: Male

DRUGS (1)
  1. FETROJA [Suspect]
     Active Substance: CEFIDEROCOL SULFATE TOSYLATE
     Indication: PNEUMONIA ACINETOBACTER
     Dosage: 2 G, 6 HOUR
     Route: 042

REACTIONS (2)
  - Pneumonia [Fatal]
  - Hodgkin^s disease recurrent [Fatal]
